FAERS Safety Report 9321305 (Version 1)
Quarter: 2013Q2

REPORT INFORMATION
  Report Type: Spontaneous
  Country: JP (occurrence: None)
  Receive Date: 20130528
  Receipt Date: 20130528
  Transmission Date: 20140414
  Serious: Yes (Hospitalization, Other)
  Sender: FDA-Public Use
  Company Number: 2013P1006117

PATIENT
  Age: 74 Year
  Sex: Female

DRUGS (6)
  1. ISONIAZID [Suspect]
     Indication: TUBERCULOUS PLEURISY
  2. ETHAMBUTOL [Concomitant]
  3. RIFAMPICIN [Concomitant]
  4. LEVODOPA [Concomitant]
  5. CABERGOLINE [Concomitant]
  6. PRAMIPEXOLE [Concomitant]

REACTIONS (8)
  - Dysphagia [None]
  - Aphagia [None]
  - Dysphonia [None]
  - Coordination abnormal [None]
  - Nuchal rigidity [None]
  - Muscle rigidity [None]
  - Parkinsonism [None]
  - Drug interaction [None]
